FAERS Safety Report 10025462 (Version 1)
Quarter: 2014Q1

REPORT INFORMATION
  Report Type: Spontaneous
  Country: US (occurrence: None)
  Receive Date: 20140319
  Receipt Date: 20140319
  Transmission Date: 20141002
  Serious: No
  Sender: FDA-Public Use
  Company Number: None

PATIENT
  Age: 84 Year
  Sex: Male
  Weight: 80.7 kg

DRUGS (2)
  1. TRAMADOL [Suspect]
     Indication: PAIN
     Route: 048
     Dates: start: 20130422, end: 20130528
  2. CYCLOBENZAPRINE [Suspect]
     Route: 048
     Dates: start: 20130522, end: 20130528

REACTIONS (3)
  - Confusional state [None]
  - Failure to thrive [None]
  - Weight decreased [None]
